FAERS Safety Report 12648315 (Version 5)
Quarter: 2017Q3

REPORT INFORMATION
  Report Type: Spontaneous
  Country: US (occurrence: US)
  Receive Date: 20160812
  Receipt Date: 20170929
  Transmission Date: 20171127
  Serious: Yes (Death, Hospitalization, Other)
  Sender: FDA-Public Use
  Company Number: US-009507513-1608USA005460

PATIENT
  Age: 49 Year
  Sex: Female
  Weight: 87 kg

DRUGS (1)
  1. POSACONAZOLE [Suspect]
     Active Substance: POSACONAZOLE
     Indication: PNEUMONIA FUNGAL
     Dosage: 300 MG, QD
     Route: 048
     Dates: start: 20160721, end: 20160727

REACTIONS (4)
  - Electrocardiogram QT prolonged [Recovering/Resolving]
  - Septic shock [Fatal]
  - Cardiac arrest [Fatal]
  - Colitis [Fatal]

NARRATIVE: CASE EVENT DATE: 20160722
